FAERS Safety Report 9028531 (Version 1)
Quarter: 2013Q1

REPORT INFORMATION
  Report Type: Spontaneous
  Country: CH (occurrence: CH)
  Receive Date: 20130124
  Receipt Date: 20130124
  Transmission Date: 20140127
  Serious: Yes (Other)
  Sender: FDA-Public Use
  Company Number: CH-UCBSA-074102

PATIENT
  Age: 48 Year
  Sex: Female

DRUGS (22)
  1. XYZAL [Suspect]
     Indication: PAIN
     Route: 048
     Dates: start: 201212, end: 201212
  2. XYZAL [Suspect]
     Indication: FATIGUE
     Route: 048
     Dates: start: 201212, end: 201212
  3. XYZAL [Suspect]
     Indication: BONE PAIN
     Route: 048
     Dates: start: 201212, end: 201212
  4. XYZAL [Suspect]
     Indication: HYPERSENSITIVITY
     Route: 048
     Dates: start: 201212, end: 201212
  5. XYZAL [Suspect]
     Indication: BONE PAIN
     Dosage: IN THE MORNING
     Route: 048
     Dates: start: 20121213, end: 20121217
  6. XYZAL [Suspect]
     Indication: HYPERSENSITIVITY
     Dosage: IN THE MORNING
     Route: 048
     Dates: start: 20121213, end: 20121217
  7. XYZAL [Suspect]
     Indication: FATIGUE
     Dosage: IN THE MORNING
     Route: 048
     Dates: start: 20121213, end: 20121217
  8. XYZAL [Suspect]
     Indication: PAIN
     Dosage: IN THE MORNING
     Route: 048
     Dates: start: 20121213, end: 20121217
  9. AGYRAX [Concomitant]
     Indication: PAIN
     Dosage: ALTERNATE DAYS IN THE MORNING
     Dates: start: 20121212, end: 20121216
  10. AGYRAX [Concomitant]
     Indication: BONE PAIN
     Dosage: ALTERNATE DAYS IN THE MORNING
     Dates: start: 20121212, end: 20121216
  11. AGYRAX [Concomitant]
     Indication: FATIGUE
     Dosage: ALTERNATE DAYS IN THE MORNING
     Dates: start: 20121212, end: 20121216
  12. AGYRAX [Concomitant]
     Indication: HYPERSENSITIVITY
     Dosage: ALTERNATE DAYS IN THE MORNING
     Dates: start: 20121212, end: 20121216
  13. AGYRAX [Concomitant]
     Indication: PAIN
     Dates: start: 20121219
  14. AGYRAX [Concomitant]
     Indication: BONE PAIN
     Dates: start: 20121219
  15. AGYRAX [Concomitant]
     Indication: FATIGUE
     Dates: start: 20121219
  16. AGYRAX [Concomitant]
     Indication: HYPERSENSITIVITY
     Dates: start: 20121219
  17. AGYRAX [Concomitant]
     Indication: PAIN
     Dates: start: 2002
  18. AGYRAX [Concomitant]
     Indication: BONE PAIN
     Dates: start: 2002
  19. AGYRAX [Concomitant]
     Indication: FATIGUE
     Dates: start: 2002
  20. AGYRAX [Concomitant]
     Indication: HYPERSENSITIVITY
     Dates: start: 2002
  21. ITINEROL B6 [Concomitant]
     Route: 048
     Dates: start: 20121003, end: 20121212
  22. ITINEROL B6 [Concomitant]
     Dosage: EVERY SECOND DAY
     Route: 048
     Dates: start: 20121214

REACTIONS (5)
  - Ventricular extrasystoles [Recovered/Resolved]
  - Bradycardia [Recovered/Resolved]
  - Headache [Recovered/Resolved]
  - Restlessness [Recovered/Resolved]
  - Fatigue [Unknown]
